FAERS Safety Report 6499224-1 (Version None)
Quarter: 2009Q4

REPORT INFORMATION
  Report Type: 
  Country: None (occurrence: None)
  Receive Date: 20091215
  Receipt Date: 20091207
  Transmission Date: 20100525
  Serious: Yes (Hospitalization)
  Sender: FDA-Public Use
  Company Number: JP-ABBOTT-09P-087-0603843-00

PATIENT
  Sex: Female
  Weight: 40 kg

DRUGS (2)
  1. HUMIRA [Suspect]
     Indication: RHEUMATOID ARTHRITIS
     Route: 058
     Dates: start: 20090729
  2. HUMIRA [Suspect]
     Route: 058
     Dates: start: 20091204

REACTIONS (3)
  - BACK PAIN [None]
  - CONTUSION [None]
  - FALL [None]
